FAERS Safety Report 9758508 (Version 1)
Quarter: 2013Q4

REPORT INFORMATION
  Report Type: Spontaneous
  Country: US (occurrence: None)
  Receive Date: 20131216
  Receipt Date: 20131216
  Transmission Date: 20140711
  Serious: No
  Sender: FDA-Public Use
  Company Number: CABO-13002729

PATIENT
  Age: 62 Year
  Sex: Female
  Weight: 74 kg

DRUGS (7)
  1. COMETRIQ (CABOZANTINIB) CAPSULE [Suspect]
     Indication: OVARIAN CANCER
     Dosage: 100 MG, QD, ORAL
  2. METFORMIN [Concomitant]
  3. GLIPIZIDE [Concomitant]
  4. JANUVIA [Concomitant]
  5. DOXYCYCLINE [Concomitant]
  6. LIPITOR [Concomitant]
  7. LOTREL [Suspect]

REACTIONS (3)
  - Feeling abnormal [None]
  - Stomatitis [None]
  - Dehydration [None]
